FAERS Safety Report 8358039-X (Version None)
Quarter: 2012Q2

REPORT INFORMATION
  Report Type: 
  Country: None (occurrence: None)
  Receive Date: 20120514
  Receipt Date: 20120501
  Transmission Date: 20120825
  Serious: Yes (Hospitalization)
  Sender: FDA-Public Use
  Company Number: LK-MYLANLABS-2012S1009344

PATIENT
  Age: 18 Year
  Sex: Female

DRUGS (1)
  1. METFORMIN HCL [Suspect]
     Indication: INTENTIONAL OVERDOSE
     Dosage: 35 TABLETS
     Route: 048

REACTIONS (9)
  - HYPOGLYCAEMIA [None]
  - VOMITING [None]
  - SUICIDE ATTEMPT [None]
  - INTENTIONAL OVERDOSE [None]
  - LACTIC ACIDOSIS [None]
  - GRAND MAL CONVULSION [None]
  - POTENTIATING DRUG INTERACTION [None]
  - HYPOTENSION [None]
  - RENAL FAILURE ACUTE [None]
